FAERS Safety Report 8178319-0 (Version None)
Quarter: 2012Q1

REPORT INFORMATION
  Report Type: 
  Country: None (occurrence: None)
  Receive Date: 20120301
  Receipt Date: 20120223
  Transmission Date: 20120608
  Serious: Yes (Hospitalization, Other)
  Sender: FDA-Public Use
  Company Number: US-PFIZER INC-2012048765

PATIENT
  Sex: Female
  Weight: 81.2 kg

DRUGS (10)
  1. XANAX [Suspect]
     Indication: ANXIETY
     Dosage: UNK
     Route: 048
  2. VERAPAMIL [Concomitant]
     Indication: HYPERTENSION
     Dosage: UNK
  3. XANAX [Suspect]
     Indication: PANIC ATTACK
     Dosage: 0.5 MG, AS NEEDED
     Route: 048
  4. MAGNESIUM [Concomitant]
     Dosage: 1000 MG, 2X/DAY
  5. TAGAMET [Concomitant]
     Dosage: UNK
  6. ASPIRIN [Concomitant]
     Indication: PERICARDIAL EFFUSION
     Dosage: 1 MG, 1X/DAY
  7. NEXIUM [Concomitant]
     Indication: GASTROOESOPHAGEAL REFLUX DISEASE
     Dosage: UNK
  8. GABAPENTIN [Concomitant]
     Indication: PARAESTHESIA
     Dosage: 1 CAPSULE 2X/DAY
  9. GABAPENTIN [Concomitant]
  10. FISH OIL [Concomitant]
     Dosage: UNK

REACTIONS (20)
  - INFECTION [None]
  - JOINT INJURY [None]
  - PANIC ATTACK [None]
  - WEIGHT INCREASED [None]
  - THINKING ABNORMAL [None]
  - ABNORMAL DREAMS [None]
  - BODY HEIGHT DECREASED [None]
  - EMOTIONAL DISORDER [None]
  - DEPRESSION [None]
  - PANIC REACTION [None]
  - CONTUSION [None]
  - BACK DISORDER [None]
  - MOBILITY DECREASED [None]
  - BRONCHITIS [None]
  - INSOMNIA [None]
  - NERVOUSNESS [None]
  - TREMOR [None]
  - STRESS [None]
  - DIZZINESS [None]
  - LIMB INJURY [None]
